FAERS Safety Report 7773659-9 (Version None)
Quarter: 2011Q3

REPORT INFORMATION
  Report Type: 
  Country: None (occurrence: None)
  Receive Date: 20110923
  Receipt Date: 20110915
  Transmission Date: 20111222
  Serious: Yes (Other)
  Sender: FDA-Public Use
  Company Number: IT-BRISTOL-MYERS SQUIBB COMPANY-15710916

PATIENT
  Age: 76 Year
  Sex: Male

DRUGS (1)
  1. SPRYCEL [Suspect]
     Dosage: INTRP + REINTR WITH REDUCED DOSE OF 40MG/DAY,DOSE INCREASED TO 60 MG/DAY,70MG/D AND 100MG/D,
     Dates: start: 20070730

REACTIONS (9)
  - BRONCHITIS [None]
  - PYREXIA [None]
  - HYPERTENSIVE HEART DISEASE [None]
  - HERPES SIMPLEX [None]
  - DIARRHOEA [None]
  - DYSPNOEA [None]
  - LYMPHOCYTOSIS [None]
  - PLEURAL EFFUSION [None]
  - GASTROINTESTINAL HAEMORRHAGE [None]
